FAERS Safety Report 11798002 (Version 1)
Quarter: 2015Q4

REPORT INFORMATION
  Report Type: Spontaneous
  Country: US (occurrence: None)
  Receive Date: 20151202
  Receipt Date: 20151202
  Transmission Date: 20160305
  Serious: No
  Sender: FDA-Public Use
  Company Number: None

PATIENT
  Age: 69 Year
  Sex: Female

DRUGS (8)
  1. CYANOCOBALAMIN. [Concomitant]
     Active Substance: CYANOCOBALAMIN
  2. ETODOLAC. [Suspect]
     Active Substance: ETODOLAC
     Indication: INFLAMMATION
     Route: 048
     Dates: start: 20150921, end: 20151110
  3. TRAMADOL. [Concomitant]
     Active Substance: TRAMADOL
  4. LUTEIN [Concomitant]
     Active Substance: LUTEIN
  5. VITAMIN D3 [Concomitant]
     Active Substance: CHOLECALCIFEROL
  6. ETODOLAC. [Suspect]
     Active Substance: ETODOLAC
     Indication: FIBROMYALGIA
     Route: 048
     Dates: start: 20150921, end: 20151110
  7. CYMBALTA [Concomitant]
     Active Substance: DULOXETINE HYDROCHLORIDE
  8. TIZANIDINE. [Concomitant]
     Active Substance: TIZANIDINE

REACTIONS (7)
  - Mood altered [None]
  - Anxiety [None]
  - Nervousness [None]
  - Rhinorrhoea [None]
  - Hyperhidrosis [None]
  - Mental status changes [None]
  - Cough [None]
